FAERS Safety Report 7238299-9 (Version None)
Quarter: 2011Q1

REPORT INFORMATION
  Report Type: 
  Country: None (occurrence: None)
  Receive Date: 20110119
  Receipt Date: 20110119
  Transmission Date: 20110831
  Serious: Yes (Hospitalization)
  Sender: FDA-Public Use
  Company Number: None

PATIENT
  Age: 77 Year
  Sex: Male
  Weight: 89.8 kg

DRUGS (2)
  1. KLOR-CON M20 [Suspect]
     Indication: ELECTROLYTE SUBSTITUTION THERAPY
     Dosage: 10 MEQ DAILY PO
     Route: 048
  2. KLOR-CON M20 [Suspect]
     Indication: DIURETIC THERAPY
     Dosage: 10 MEQ DAILY PO
     Route: 048

REACTIONS (3)
  - CARDIAC FAILURE CONGESTIVE [None]
  - RENAL FAILURE [None]
  - BLOOD POTASSIUM INCREASED [None]
